FAERS Safety Report 16871434 (Version 1)
Quarter: 2019Q4

REPORT INFORMATION
  Report Type: Spontaneous
  Country: US (occurrence: US)
  Receive Date: 20190924
  Receipt Date: 20190924
  Transmission Date: 20200122
  Serious: Yes (Disabling)
  Sender: FDA-Public Use
  Company Number: None

PATIENT
  Age: 40 Year
  Sex: Male

DRUGS (2)
  1. EVE^S MAGIC. HEMP REMEDY CBD OIL 750MG [Suspect]
     Active Substance: CANNABIDIOL\HERBALS
     Indication: ARTHRITIS
     Dosage: ?          QUANTITY:20 DROP(S);?
  2. EVE^S MAGIC. HEMP REMEDY CBD OIL 750MG [Suspect]
     Active Substance: CANNABIDIOL\HERBALS
     Indication: MULTIPLE SCLEROSIS
     Dosage: ?          QUANTITY:20 DROP(S);?

REACTIONS (4)
  - Product use in unapproved indication [None]
  - Hypersensitivity [None]
  - Product counterfeit [None]
  - Manufacturing materials issue [None]

NARRATIVE: CASE EVENT DATE: 20190924
